FAERS Safety Report 8056330-8 (Version None)
Quarter: 2012Q1

REPORT INFORMATION
  Report Type: 
  Country: None (occurrence: None)
  Receive Date: 20120119
  Receipt Date: 20120109
  Transmission Date: 20120608
  Serious: Yes (Hospitalization)
  Sender: FDA-Public Use
  Company Number: US-ELI_LILLY_AND_COMPANY-US201201002997

PATIENT
  Sex: Female

DRUGS (10)
  1. VERAPAMIL [Concomitant]
  2. FORTEO [Suspect]
     Dosage: 20 UG, QD
     Route: 065
  3. PROHAIR [Concomitant]
  4. SPIRIVA [Concomitant]
  5. PRAVASTAN [Concomitant]
  6. BONIVA [Concomitant]
     Dosage: UNK
     Dates: end: 20110516
  7. FORTEO [Suspect]
     Indication: OSTEOPOROSIS
     Dosage: 20 UG, QD
     Route: 065
  8. REGLAN [Concomitant]
  9. FORTEO [Suspect]
     Dosage: 20 UG, QD
     Route: 065
     Dates: start: 20110914
  10. ADVAIR DISKUS 100/50 [Concomitant]

REACTIONS (4)
  - INSOMNIA [None]
  - DRUG DOSE OMISSION [None]
  - SPINAL FRACTURE [None]
  - PAIN [None]
